FAERS Safety Report 8250687-0 (Version None)
Quarter: 2012Q2

REPORT INFORMATION
  Report Type: 
  Country: None (occurrence: None)
  Receive Date: 20120402
  Receipt Date: 20120322
  Transmission Date: 20120825
  Serious: Yes (Hospitalization)
  Sender: FDA-Public Use
  Company Number: FR-PFIZER INC-2012075412

PATIENT
  Age: 80 Year
  Sex: Male

DRUGS (8)
  1. POLYETHYLENE GLYCOL [Concomitant]
     Dosage: 10 G, 1X/DAY
     Route: 048
  2. ALDACTONE [Suspect]
     Dosage: 25 MG, 1X/DAY
     Route: 048
     Dates: end: 20120215
  3. ACETAMINOPHEN [Concomitant]
     Dosage: 500 MG CAPSULE, TWO DOSAGE FORMS THREE TIMES PER DAY
     Route: 048
  4. RAMIPRIL [Suspect]
     Indication: ATRIAL FIBRILLATION
     Dosage: 5 MG, 2X/DAY
     Route: 048
     Dates: end: 20120215
  5. ASPIRIN [Concomitant]
     Dosage: 75 MG, 1X/DAY
     Route: 048
  6. AMLODIPINE BESYLATE [Concomitant]
     Dosage: 5 MG, 1X/DAY
     Route: 048
  7. METEOSPASMYL [Concomitant]
     Dosage: 1 DF, 2X/DAY
     Route: 048
  8. ALLOPURINOL [Concomitant]
     Dosage: 100 MG, 1X/DAY
     Route: 048

REACTIONS (3)
  - RENAL FAILURE ACUTE [None]
  - SMALL INTESTINAL OBSTRUCTION [None]
  - APPENDICITIS [None]
